FAERS Safety Report 16878744 (Version 1)
Quarter: 2019Q4

REPORT INFORMATION
  Report Type: Spontaneous
  Country: US (occurrence: US)
  Receive Date: 20191002
  Receipt Date: 20191002
  Transmission Date: 20200122
  Serious: No
  Sender: FDA-Public Use
  Company Number: US-SA-2019SA272105

PATIENT
  Sex: Female

DRUGS (30)
  1. BIOTIN [Concomitant]
     Active Substance: BIOTIN
  2. MULTAQ [Concomitant]
     Active Substance: DRONEDARONE
  3. POTASSIUM CHLORIDE. [Concomitant]
     Active Substance: POTASSIUM CHLORIDE
  4. PROLIA [Concomitant]
     Active Substance: DENOSUMAB
  5. BUDESONIDE. [Concomitant]
     Active Substance: BUDESONIDE
  6. MUCINEX [Concomitant]
     Active Substance: GUAIFENESIN
  7. PREDNISONE. [Concomitant]
     Active Substance: PREDNISONE
  8. DOXYCYCLINE HYCLATE. [Concomitant]
     Active Substance: DOXYCYCLINE HYCLATE
  9. HIZENTRA [Concomitant]
     Active Substance: HUMAN IMMUNOGLOBULIN G
  10. ADVAIR HFA [Concomitant]
     Active Substance: FLUTICASONE PROPIONATE\SALMETEROL XINAFOATE
  11. ALBUTEROL SULFATE. [Concomitant]
     Active Substance: ALBUTEROL SULFATE
  12. NYSTATIN. [Concomitant]
     Active Substance: NYSTATIN
  13. IPRATROPIUM BROMIDE. [Concomitant]
     Active Substance: IPRATROPIUM BROMIDE
  14. VITAMINS NOS [Concomitant]
     Active Substance: VITAMINS
  15. DUPIXENT [Suspect]
     Active Substance: DUPILUMAB
     Indication: PRODUCT USED FOR UNKNOWN INDICATION
     Dosage: 300 MG, QOW
     Route: 058
  16. EPINEPHRINE. [Concomitant]
     Active Substance: EPINEPHRINE
  17. FUROSEMIDE. [Concomitant]
     Active Substance: FUROSEMIDE
  18. PREVA [Concomitant]
  19. COENZYME Q10 [Concomitant]
     Active Substance: UBIDECARENONE
  20. HYDROCODONE/ACETAMINOPHEN [Concomitant]
     Active Substance: ACETAMINOPHEN\HYDROCODONE
  21. FLUCONAZOLE. [Concomitant]
     Active Substance: FLUCONAZOLE
  22. HYDROCODONE [Concomitant]
     Active Substance: HYDROCODONE
  23. LIVALO [Concomitant]
     Active Substance: PITAVASTATIN CALCIUM
  24. DIFLUCAN [Concomitant]
     Active Substance: FLUCONAZOLE
  25. XOLAIR [Concomitant]
     Active Substance: OMALIZUMAB
  26. CLARITIN [Concomitant]
     Active Substance: LORATADINE
  27. ESTRACE [Concomitant]
     Active Substance: ESTRADIOL
  28. FLONASE ALLERGY RELIEF [Concomitant]
     Active Substance: FLUTICASONE PROPIONATE
  29. OCUVITE ADULT 50+ [ASCORBIC ACID;CUPRIC OXIDE;OMEGA-3 FATTY ACIDS;TOCO [Concomitant]
  30. DICLOFENAC SODIUM. [Concomitant]
     Active Substance: DICLOFENAC SODIUM

REACTIONS (3)
  - Presyncope [Recovered/Resolved]
  - Cardiac disorder [Recovered/Resolved]
  - Muscle spasms [Recovered/Resolved]
